FAERS Safety Report 21567709 (Version 3)
Quarter: 2022Q4

REPORT INFORMATION
  Report Type: Report from Study
  Country: DE (occurrence: DE)
  Receive Date: 20221108
  Receipt Date: 20221219
  Transmission Date: 20230112
  Serious: Yes (Other)
  Sender: FDA-Public Use
  Company Number: DE-JNJFOC-20221113832

PATIENT
  Age: 30 Year
  Sex: Female
  Weight: 57.5 kg

DRUGS (4)
  1. TRABECTEDIN [Suspect]
     Active Substance: TRABECTEDIN
     Indication: Neoplasm
     Route: 042
     Dates: start: 20220630
  2. TRABECTEDIN [Suspect]
     Active Substance: TRABECTEDIN
     Route: 042
     Dates: start: 20221006
  3. OLAPARIB [Suspect]
     Active Substance: OLAPARIB
     Indication: Neoplasm
     Route: 048
     Dates: start: 20220630
  4. OLAPARIB [Suspect]
     Active Substance: OLAPARIB
     Route: 048
     Dates: start: 20221021

REACTIONS (2)
  - Skin irritation [Unknown]
  - Extravasation [Unknown]

NARRATIVE: CASE EVENT DATE: 20221026
